FAERS Safety Report 6939616-7 (Version None)
Quarter: 2010Q3

REPORT INFORMATION
  Report Type: 
  Country: None (occurrence: None)
  Receive Date: 20100820
  Receipt Date: 20100813
  Transmission Date: 20110219
  Serious: No
  Sender: FDA-Public Use
  Company Number: 2010SP042154

PATIENT
  Sex: Female

DRUGS (1)
  1. DESOGESTREL AND ETHINYL ESTRADIOL [Suspect]
     Indication: MENSTRUATION DELAYED
     Dosage: ;QD;PO
     Route: 048
     Dates: start: 20100720

REACTIONS (2)
  - OFF LABEL USE [None]
  - VAGINAL HAEMORRHAGE [None]
